FAERS Safety Report 8187085-4 (Version None)
Quarter: 2012Q1

REPORT INFORMATION
  Report Type: 
  Country: None (occurrence: None)
  Receive Date: 20120302
  Receipt Date: 20120216
  Transmission Date: 20120608
  Serious: Yes (Death)
  Sender: FDA-Public Use
  Company Number: 2011SGN00365

PATIENT
  Age: 52 Year
  Sex: Male

DRUGS (5)
  1. DOXORUBICIN HYDROCHLORIDE [Suspect]
     Indication: HODGKIN'S DISEASE
     Dosage: 25 MG/M2, Q14D
     Dates: start: 20100423, end: 20100716
  2. BLEOMYCIN SULFATE [Suspect]
     Indication: HODGKIN'S DISEASE
     Dosage: 10 UNITS/M2, Q14D
     Dates: start: 20100423, end: 20100716
  3. BRENTUXIMAB VEDOTIN (BRENTUXIMAB VEDOTIN) INJECTION [Suspect]
     Indication: HODGKIN'S DISEASE
     Dosage: 0.9 MG/KG, Q14D
     Dates: start: 20100423, end: 20100618
  4. VINBLASTINE SULFATE [Suspect]
     Indication: HODGKIN'S DISEASE
     Dosage: 6 MG/M2, Q14D
     Dates: start: 20100423, end: 20100702
  5. DACARBAZINE [Suspect]
     Indication: HODGKIN'S DISEASE
     Dosage: 375 MG/M2, Q14D
     Dates: start: 20100423, end: 20100716

REACTIONS (10)
  - PULMONARY TOXICITY [None]
  - HYPOTENSION [None]
  - CONTINUOUS HAEMODIAFILTRATION [None]
  - RENAL FAILURE ACUTE [None]
  - PULMONARY FIBROSIS [None]
  - RIGHT VENTRICULAR FAILURE [None]
  - PULMONARY EMBOLISM [None]
  - HYPONATRAEMIA [None]
  - FEBRILE NEUTROPENIA [None]
  - BRONCHIECTASIS [None]
